FAERS Safety Report 6099406-7 (Version None)
Quarter: 2009Q1

REPORT INFORMATION
  Report Type: 
  Country: None (occurrence: None)
  Receive Date: 20090220
  Receipt Date: 20090220
  Transmission Date: 20090719
  Serious: Yes (Disabling)
  Sender: FDA-Public Use
  Company Number: None

PATIENT
  Sex: Female
  Weight: 65.7716 kg

DRUGS (1)
  1. FORMOCREOSOL [Suspect]
     Indication: ENDODONTIC PROCEDURE
     Dosage: COTTON PELLET SOAKED IN DENTAL
     Route: 004
     Dates: start: 20060508, end: 20060515

REACTIONS (2)
  - ACTIVITIES OF DAILY LIVING IMPAIRED [None]
  - DYSGEUSIA [None]
